FAERS Safety Report 7684439-7 (Version None)
Quarter: 2011Q3

REPORT INFORMATION
  Report Type: 
  Country: None (occurrence: None)
  Receive Date: 20110816
  Receipt Date: 20110808
  Transmission Date: 20111222
  Serious: Yes (Hospitalization)
  Sender: FDA-Public Use
  Company Number: US-BIOGENIDEC-2011BI005092

PATIENT
  Age: 52 Year
  Sex: Female

DRUGS (1)
  1. TYSABRI [Suspect]
     Indication: MULTIPLE SCLEROSIS
     Route: 042
     Dates: start: 20100204

REACTIONS (6)
  - VISION BLURRED [None]
  - HYPOAESTHESIA [None]
  - NECK PAIN [None]
  - LYMPHADENOPATHY [None]
  - PAIN IN EXTREMITY [None]
  - PNEUMONIA [None]
